FAERS Safety Report 15291763 (Version 1)
Quarter: 2018Q3

REPORT INFORMATION
  Report Type: Spontaneous
  Country: SI (occurrence: SI)
  Receive Date: 20180817
  Receipt Date: 20180817
  Transmission Date: 20181010
  Serious: Yes (Life-Threatening, Other)
  Sender: FDA-Public Use
  Company Number: SI-GILEAD-2018-0356593

PATIENT
  Age: 67 Year
  Sex: Male

DRUGS (5)
  1. NEBILET [Concomitant]
     Active Substance: NEBIVOLOL
  2. MAREVAN [Concomitant]
     Active Substance: WARFARIN SODIUM
  3. ZYDELIG [Suspect]
     Active Substance: IDELALISIB
     Indication: B-CELL LYMPHOMA
     Route: 048
     Dates: start: 20180423, end: 20180611
  4. CIPRALEX [Concomitant]
     Active Substance: ESCITALOPRAM OXALATE
  5. INSULIN [Concomitant]
     Active Substance: INSULIN NOS

REACTIONS (4)
  - Pneumococcal infection [Unknown]
  - Loss of consciousness [Unknown]
  - Coma [Unknown]
  - Meningoencephalitis bacterial [Unknown]

NARRATIVE: CASE EVENT DATE: 20180614
